FAERS Safety Report 8359945-2 (Version None)
Quarter: 2012Q2

REPORT INFORMATION
  Report Type: 
  Country: None (occurrence: None)
  Receive Date: 20120515
  Receipt Date: 20120511
  Transmission Date: 20120825
  Serious: Yes (Death, Hospitalization, Other)
  Sender: FDA-Public Use
  Company Number: PHHY2011CA33764

PATIENT
  Sex: Male

DRUGS (1)
  1. SANDOSTATIN LAR [Suspect]
     Indication: RECTAL CANCER
     Dosage: 30 MG, QMO
     Route: 030
     Dates: start: 20110414, end: 20120119

REACTIONS (17)
  - RIB FRACTURE [None]
  - MYOCARDIAL INFARCTION [None]
  - INCISION SITE INFECTION [None]
  - DYSPNOEA [None]
  - HYPERHIDROSIS [None]
  - NEOPLASM PROGRESSION [None]
  - POST PROCEDURAL DISCHARGE [None]
  - EMOTIONAL DISTRESS [None]
  - BREATH SOUNDS ABNORMAL [None]
  - DEATH [None]
  - DIARRHOEA [None]
  - SPEECH DISORDER [None]
  - DYSPHONIA [None]
  - POLYP [None]
  - CHILLS [None]
  - BLOOD PRESSURE SYSTOLIC INCREASED [None]
  - CONFUSIONAL STATE [None]
